FAERS Safety Report 7461815-9 (Version None)
Quarter: 2011Q2

REPORT INFORMATION
  Report Type: 
  Country: None (occurrence: None)
  Receive Date: 20110506
  Receipt Date: 20110427
  Transmission Date: 20111010
  Serious: Yes (Other)
  Sender: FDA-Public Use
  Company Number: US-BAYER-2011-036604

PATIENT

DRUGS (2)
  1. AVELOX [Suspect]
  2. CIPRO [Suspect]

REACTIONS (1)
  - MYASTHENIA GRAVIS [None]
